FAERS Safety Report 5224671-5 (Version None)
Quarter: 2007Q1

REPORT INFORMATION
  Report Type: 
  Country: None (occurrence: None)
  Receive Date: 20070129
  Receipt Date: 20070129
  Transmission Date: 20070707
  Serious: No
  Sender: FDA-Public Use
  Company Number: None

PATIENT
  Age: 21 Year
  Sex: Female
  Weight: 68.0396 kg

DRUGS (1)
  1. TUBERSOL [Suspect]
     Indication: EXPOSURE TO COMMUNICABLE DISEASE
     Dosage: .1ML    STAT   SC
     Route: 058
     Dates: start: 20070122

REACTIONS (3)
  - ABDOMINAL PAIN UPPER [None]
  - HEADACHE [None]
  - PAIN IN EXTREMITY [None]
